FAERS Safety Report 12240308 (Version 1)
Quarter: 2016Q2

REPORT INFORMATION
  Report Type: Report from Study
  Country: FR (occurrence: FR)
  Receive Date: 20160405
  Receipt Date: 20160405
  Transmission Date: 20160815
  Serious: Yes (Hospitalization, Other)
  Sender: FDA-Public Use
  Company Number: FR-EXELIXIS-XL18415005909

PATIENT
  Age: 26 Year

DRUGS (1)
  1. XL184 [Suspect]
     Active Substance: CABOZANTINIB
     Indication: OSTEOSARCOMA
     Dosage: 60 MG, QD
     Route: 048
     Dates: start: 20151008, end: 20151021

REACTIONS (4)
  - Anaemia [Not Recovered/Not Resolved]
  - Spinal cord compression [Not Recovered/Not Resolved]
  - Lipase increased [Recovered/Resolved]
  - Bone pain [Unknown]

NARRATIVE: CASE EVENT DATE: 2015
